FAERS Safety Report 14546020 (Version 1)
Quarter: 2018Q1

REPORT INFORMATION
  Report Type: Spontaneous
  Country: US (occurrence: US)
  Receive Date: 20180219
  Receipt Date: 20180219
  Transmission Date: 20180509
  Serious: Yes (Other)
  Sender: FDA-Public Use
  Company Number: US-TEVA-743200USA

PATIENT
  Sex: Female

DRUGS (1)
  1. MIRTAZAPINE. [Suspect]
     Active Substance: MIRTAZAPINE
     Indication: SLEEP DISORDER
     Dosage: 15 MILLIGRAM DAILY;
     Route: 065

REACTIONS (8)
  - Bedridden [Unknown]
  - Arthralgia [Unknown]
  - Muscle spasms [Unknown]
  - Wrong technique in product usage process [Unknown]
  - Product use in unapproved indication [Unknown]
  - Malaise [Unknown]
  - Paralysis [Unknown]
  - Myalgia [Unknown]
